FAERS Safety Report 5565486-8 (Version None)
Quarter: 2007Q4

REPORT INFORMATION
  Report Type: 
  Country: None (occurrence: None)
  Receive Date: 20071218
  Receipt Date: 20071023
  Transmission Date: 20080405
  Serious: Yes (Other)
  Sender: FDA-Public Use
  Company Number: US-PURDUE-USA_2007_0030210

PATIENT
  Age: 43 Year
  Sex: Female

DRUGS (19)
  1. GLIPIZIDE [Concomitant]
     Indication: DIABETES MELLITUS
     Dosage: 1 UNK, DAILY
  2. PREVACID [Concomitant]
     Indication: GASTROOESOPHAGEAL REFLUX DISEASE
     Dosage: 1 UNK, DAILY
  3. DIOVAN [Concomitant]
     Indication: HYPERTENSION
     Dosage: 1 UNK, DAILY
  4. VYTORIN [Concomitant]
     Indication: BLOOD CHOLESTEROL
     Dosage: 1 UNK, DAILY
  5. PROZAC [Concomitant]
     Dosage: 60 MG, AM
  6. ACETYLSALICYLIC ACID SRT [Concomitant]
     Dosage: 81 MG, AM
  7. FOLIC ACID [Concomitant]
     Dosage: 3 MG, AM
  8. DIAZEPAM [Concomitant]
     Dosage: 10 MG, TID
  9. TRAZODONE HCL [Concomitant]
     Dosage: 100 MG, HS
  10. METHOTREXATE [Concomitant]
     Dosage: 10 ML, WEEKLY
  11. HYDROCODONE BITARTRATE [Concomitant]
     Dosage: UNK, Q6H
  12. FLONASE [Concomitant]
     Indication: SINUS DISORDER
     Dosage: 2 SPRAY, UNK
     Route: 045
  13. ALBUTEROL [Concomitant]
     Dosage: 2 PUFF, QID PRN
  14. LASIX [Concomitant]
     Dosage: 40 MG, PRN
  15. VITAMINS [Concomitant]
  16. VITAMIN E [Concomitant]
  17. FISH OIL [Concomitant]
  18. CALCIUM [Concomitant]
  19. OXYCONTIN [Suspect]
     Indication: PAIN
     Dosage: 40 MG, BID
     Dates: start: 20020405, end: 20051122

REACTIONS (13)
  - CHILLS [None]
  - CONVULSION [None]
  - DRUG DEPENDENCE [None]
  - DRUG WITHDRAWAL SYNDROME [None]
  - DYSKINESIA [None]
  - FEELING ABNORMAL [None]
  - FEELING COLD [None]
  - KNEE ARTHROPLASTY [None]
  - MENTAL DISORDER [None]
  - ROAD TRAFFIC ACCIDENT [None]
  - SUICIDAL IDEATION [None]
  - THINKING ABNORMAL [None]
  - TREMOR [None]
